FAERS Safety Report 7982071-9 (Version None)
Quarter: 2011Q4

REPORT INFORMATION
  Report Type: 
  Country: None (occurrence: None)
  Receive Date: 20111212
  Receipt Date: 20111129
  Transmission Date: 20120403
  Serious: No
  Sender: FDA-Public Use
  Company Number: 2011SP056448

PATIENT
  Sex: Female

DRUGS (4)
  1. SAPHRIS [Suspect]
     Indication: BIPOLAR DISORDER
     Dosage: HS
  2. HALDOL [Concomitant]
  3. LAMICTAL [Concomitant]
  4. DEPAKOTE [Concomitant]

REACTIONS (2)
  - ERYTHEMA [None]
  - MANIA [None]
